FAERS Safety Report 6749349-8 (Version None)
Quarter: 2010Q2

REPORT INFORMATION
  Report Type: 
  Country: None (occurrence: None)
  Receive Date: 20100601
  Receipt Date: 20100521
  Transmission Date: 20101027
  Serious: Yes (Hospitalization)
  Sender: FDA-Public Use
  Company Number: DE-ROCHE-699680

PATIENT
  Sex: Female

DRUGS (15)
  1. TRASTUZUMAB [Suspect]
     Dosage: THERAPY INTERRUPTED.
     Route: 042
     Dates: start: 20100326
  2. PACLITAXEL [Suspect]
     Dosage: THERAPY INTERRUPTED.
     Route: 042
     Dates: start: 20100326
  3. OMEPRAZOLE [Concomitant]
  4. LISINOPRIL [Concomitant]
  5. METOPROLOL TARTRATE [Concomitant]
  6. LEVOTHYROXINE SODIUM [Concomitant]
  7. HYDROMORPHONE HYDROCHLORIDE [Concomitant]
  8. DULOXETINE HYDROCHLORIDE [Concomitant]
  9. PREGABALIN [Concomitant]
  10. SPIRO COMP [Concomitant]
  11. STANGYL [Concomitant]
  12. DIPYRONE [Concomitant]
  13. TAMOXIFEN CITRATE [Concomitant]
     Dates: start: 20040205
  14. DEXAMETHASONE [Concomitant]
  15. ZOPICLONE [Concomitant]

REACTIONS (4)
  - DEPRESSED MOOD [None]
  - LIPASE INCREASED [None]
  - PANCREATITIS [None]
  - PNEUMONITIS [None]
